FAERS Safety Report 6847889-4 (Version None)
Quarter: 2010Q3

REPORT INFORMATION
  Report Type: 
  Country: None (occurrence: None)
  Receive Date: 20100716
  Receipt Date: 20100706
  Transmission Date: 20110219
  Serious: Yes (Hospitalization)
  Sender: FDA-Public Use
  Company Number: JP-ELI_LILLY_AND_COMPANY-JP201007000818

PATIENT
  Age: 80 Year
  Sex: Male
  Weight: 55 kg

DRUGS (9)
  1. PEMETREXED [Suspect]
     Indication: LUNG ADENOCARCINOMA STAGE IV
     Dosage: 500 MG/M2, OTHER
     Route: 042
     Dates: start: 20100210, end: 20100210
  2. PANVITAN [Concomitant]
     Dosage: 1 G, DAILY (1/D)
     Route: 048
     Dates: start: 20100203, end: 20100303
  3. METHYCOBAL [Concomitant]
     Dosage: 1 MG, UNK
     Route: 030
     Dates: start: 20100203, end: 20100203
  4. DECADRON [Concomitant]
     Route: 042
     Dates: start: 20100210, end: 20100210
  5. OXYCONTIN [Concomitant]
     Indication: CANCER PAIN
     Route: 048
     Dates: end: 20100101
  6. LOXONIN [Concomitant]
     Indication: CANCER PAIN
     Dates: end: 20100101
  7. OMEPRAL [Concomitant]
     Indication: PROPHYLAXIS
     Dates: end: 20100101
  8. MUCOSTA [Concomitant]
     Indication: PROPHYLAXIS
     Route: 048
     Dates: end: 20100101
  9. NEO-MINOPHAGEN C [Concomitant]
     Indication: HEPATIC FUNCTION ABNORMAL
     Route: 030
     Dates: start: 20100208, end: 20100301

REACTIONS (2)
  - HEPATIC FUNCTION ABNORMAL [None]
  - PLATELET COUNT DECREASED [None]
